FAERS Safety Report 13330083 (Version 1)
Quarter: 2017Q1

REPORT INFORMATION
  Report Type: Report from Study
  Country: None (occurrence: US)
  Receive Date: 20170313
  Receipt Date: 20170313
  Transmission Date: 20170428
  Serious: Yes (Hospitalization)
  Sender: FDA-Public Use
  Company Number: US-ABBVIE-17P-163-1890965-00

PATIENT
  Age: 3 Month
  Sex: Female
  Weight: 5.4 kg

DRUGS (2)
  1. SYNAGIS [Suspect]
     Active Substance: PALIVIZUMAB
     Indication: SPINAL MUSCULAR ATROPHY
     Dosage: 15MG/KG EVERY 28-30 DAYS
     Route: 030
     Dates: start: 20161221, end: 20170213
  2. SYNAGIS [Suspect]
     Active Substance: PALIVIZUMAB
     Indication: ANTIVIRAL PROPHYLAXIS
     Dosage: 15MG/KG EVERY 28-30 DAYS
     Route: 030
     Dates: start: 20161221, end: 20170213

REACTIONS (4)
  - Influenza [Not Recovered/Not Resolved]
  - Respiratory syncytial virus infection [Unknown]
  - Off label use [Unknown]
  - Product use issue [Unknown]

NARRATIVE: CASE EVENT DATE: 201702
